FAERS Safety Report 5002217-4 (Version None)
Quarter: 2006Q2

REPORT INFORMATION
  Report Type: 
  Country: None (occurrence: None)
  Receive Date: 20060511
  Receipt Date: 20060511
  Transmission Date: 20061013
  Serious: Yes (Life-Threatening, Hospitalization, Other)
  Sender: FDA-Public Use
  Company Number: None

PATIENT
  Sex: Male
  Weight: 90.7194 kg

DRUGS (1)
  1. FLEETS PHOSPHA SODA [Suspect]
     Indication: PREOPERATIVE CARE
     Dosage: 2 BOTTLES  GIVEN DAY BEFORE PO
     Route: 048
     Dates: start: 20060430, end: 20060430

REACTIONS (1)
  - POSTOPERATIVE RENAL FAILURE [None]
